FAERS Safety Report 4853943-9 (Version None)
Quarter: 2005Q4

REPORT INFORMATION
  Report Type: 
  Country: None (occurrence: None)
  Receive Date: 20051213
  Receipt Date: 20050825
  Transmission Date: 20060501
  Serious: No
  Sender: FDA-Public Use
  Company Number: USA-2005-0020709

PATIENT
  Age: 38 Year
  Sex: Male
  Weight: 74.8 kg

DRUGS (4)
  1. MS CONTIN [Suspect]
     Indication: PAIN
     Dosage: 30 MG,Q12H, ORAL
     Route: 048
     Dates: start: 20050330, end: 20050715
  2. MORPHINE SULFATE [Concomitant]
  3. IMIPRAMINE [Concomitant]
  4. POTASSIUM CHLORIDE [Concomitant]

REACTIONS (27)
  - ALCOHOL USE [None]
  - ANOREXIA [None]
  - ASTHENIA [None]
  - CHAPPED LIPS [None]
  - CONFUSIONAL STATE [None]
  - COORDINATION ABNORMAL [None]
  - DEHYDRATION [None]
  - DIARRHOEA [None]
  - DISTURBANCE IN ATTENTION [None]
  - DRUG HYPERSENSITIVITY [None]
  - DRUG INEFFECTIVE [None]
  - DRUG WITHDRAWAL SYNDROME [None]
  - DRY MOUTH [None]
  - FATIGUE [None]
  - HEADACHE [None]
  - HEART RATE INCREASED [None]
  - HYPOKALAEMIA [None]
  - INFLUENZA [None]
  - INSOMNIA [None]
  - MALAISE [None]
  - MUSCLE SPASMS [None]
  - MUSCLE TWITCHING [None]
  - PAIN [None]
  - PARAESTHESIA [None]
  - SEXUAL DYSFUNCTION [None]
  - VIRAL INFECTION [None]
  - VOMITING [None]
